FAERS Safety Report 8823179 (Version 2)
Quarter: 2012Q4

REPORT INFORMATION
  Report Type: 
  Country: JP (occurrence: JP)
  Receive Date: 20121003
  Receipt Date: 20121017
  Transmission Date: 20130627
  Serious: Yes (Other)
  Sender: FDA-Public Use
  Company Number: JP-ROCHE-1139764

PATIENT
  Age: 55 Year
  Sex: Female

DRUGS (3)
  1. REBETOL [Suspect]
     Indication: HEPATITIS C
     Dosage: Dosage is uncertain.
     Route: 048
  2. PEGINTRON [Suspect]
     Indication: HEPATITIS C
     Dosage: Dosage is uncertain.
     Route: 058
  3. TELAPREVIR [Suspect]
     Indication: HEPATITIS C
     Dosage: Dosage is uncertain.
     Route: 065

REACTIONS (3)
  - Renal impairment [Unknown]
  - Rash [Unknown]
  - Anaemia [Unknown]
